FAERS Safety Report 6080097-6 (Version None)
Quarter: 2009Q1

REPORT INFORMATION
  Report Type: 
  Country: None (occurrence: None)
  Receive Date: 20090217
  Receipt Date: 20090130
  Transmission Date: 20090719
  Serious: Yes (Death)
  Sender: FDA-Public Use
  Company Number: US-TYCO HEALTHCARE/MALLINCKRODT-T200900233

PATIENT
  Age: 12 Year
  Sex: Female

DRUGS (7)
  1. METHADOSE [Suspect]
     Route: 048
  2. QUETIAPINE FUMARATE [Suspect]
     Route: 048
  3. DOXYLAMINE SUCCINATE [Suspect]
     Route: 048
  4. PAROXETINE HCL [Suspect]
     Route: 048
  5. AMANTADINE HCL [Suspect]
     Route: 048
  6. COLD MEDICINES [Concomitant]
  7. IBUPROFEN [Concomitant]

REACTIONS (10)
  - ABDOMINAL PAIN UPPER [None]
  - ASPIRATION [None]
  - BRAIN OEDEMA [None]
  - CARDIO-RESPIRATORY ARREST [None]
  - DRUG TOXICITY [None]
  - INTENTIONAL DRUG MISUSE [None]
  - NASOPHARYNGITIS [None]
  - PYREXIA [None]
  - UNRESPONSIVE TO STIMULI [None]
  - VOMITING [None]
